FAERS Safety Report 16342364 (Version 1)
Quarter: 2019Q2

REPORT INFORMATION
  Report Type: Spontaneous
  Country: US (occurrence: US)
  Receive Date: 20190416
  Receipt Date: 20190416
  Transmission Date: 20190711
  Serious: Yes (Other)
  Sender: FDA-Public Use
  Company Number: None

PATIENT
  Age: 76 Year
  Sex: Female

DRUGS (2)
  1. GLEEVEC [Suspect]
     Active Substance: IMATINIB MESYLATE
     Dates: start: 20180608
  2. LYRICA [Suspect]
     Active Substance: PREGABALIN

REACTIONS (1)
  - Nausea [None]

NARRATIVE: CASE EVENT DATE: 20190415
